FAERS Safety Report 17229677 (Version 2)
Quarter: 2020Q1

REPORT INFORMATION
  Report Type: Spontaneous
  Country: CN (occurrence: CN)
  Receive Date: 20200103
  Receipt Date: 20200114
  Transmission Date: 20200409
  Serious: Yes (Other)
  Sender: FDA-Public Use
  Company Number: CN-PFIZER INC-2020000360

PATIENT
  Age: 53 Year
  Sex: Male
  Weight: 58.7 kg

DRUGS (5)
  1. VFEND [Suspect]
     Active Substance: VORICONAZOLE
     Dosage: 200 MG, 2X/DAY
     Route: 041
     Dates: start: 20191116, end: 20191117
  2. VFEND [Suspect]
     Active Substance: VORICONAZOLE
     Dosage: 100 MG, 2X/DAY
     Route: 041
     Dates: start: 20191118, end: 20191120
  3. VFEND [Suspect]
     Active Substance: VORICONAZOLE
     Dosage: 100 MG, 1X/DAY
     Route: 041
     Dates: start: 20191121, end: 20191122
  4. VFEND [Suspect]
     Active Substance: VORICONAZOLE
     Indication: THERAPEUTIC PROCEDURE
     Dosage: 100 MG, 1X/DAY
     Route: 048
     Dates: start: 20191123, end: 20191204
  5. VFEND [Suspect]
     Active Substance: VORICONAZOLE
     Indication: THERAPEUTIC PROCEDURE
     Dosage: 400 MG, 2X/DAY
     Route: 041
     Dates: start: 20191115, end: 20191115

REACTIONS (1)
  - Blood bilirubin increased [Recovering/Resolving]

NARRATIVE: CASE EVENT DATE: 20191203
